FAERS Safety Report 8855409 (Version 1)
Quarter: 2012Q4

REPORT INFORMATION
  Report Type: 
  Country: US (occurrence: US)
  Receive Date: 20121023
  Receipt Date: 20121023
  Transmission Date: 20130627
  Serious: No
  Sender: FDA-Public Use
  Company Number: US-AMGEN-USASP2012048100

PATIENT
  Age: 50 Year
  Sex: Female
  Weight: 85.26 kg

DRUGS (6)
  1. ENBREL [Suspect]
     Indication: PSORIATIC ARTHROPATHY
     Dosage: 50 mg, qwk
     Route: 058
     Dates: start: 20030214
  2. METHOTREXATE [Concomitant]
     Indication: PSORIATIC ARTHROPATHY
     Dosage: 2.5 mg, qwk
     Route: 048
  3. NAPROXEN [Concomitant]
     Indication: PSORIATIC ARTHROPATHY
     Dosage: 500 mg, bid
     Route: 048
     Dates: start: 20120823
  4. FOLIC ACID [Concomitant]
     Indication: PSORIATIC ARTHROPATHY
     Dosage: 1 mg, qd
     Route: 048
  5. BENICAR [Concomitant]
     Dosage: UNK
     Route: 048
  6. LEXAPRO [Concomitant]
     Dosage: UNK
     Route: 048

REACTIONS (1)
  - Therapeutic response decreased [Unknown]
